FAERS Safety Report 14296750 (Version 2)
Quarter: 2018Q2

REPORT INFORMATION
  Report Type: Spontaneous
  Country: ES (occurrence: ES)
  Receive Date: 20171218
  Receipt Date: 20180504
  Transmission Date: 20180711
  Serious: Yes (Hospitalization)
  Sender: FDA-Public Use
  Company Number: PHHY2017ES184923

PATIENT
  Age: 71 Year
  Sex: Male
  Weight: 87 kg

DRUGS (8)
  1. CLEXANE [Concomitant]
     Active Substance: ENOXAPARIN SODIUM
     Indication: THROMBOSIS PROPHYLAXIS
     Dosage: 60 MG, QD
     Route: 058
     Dates: start: 20171106, end: 20171121
  2. FUROSEMIDE. [Concomitant]
     Active Substance: FUROSEMIDE
     Indication: CARDIAC FAILURE
     Dosage: 40 MILLIGRAM
     Route: 048
     Dates: start: 20171102
  3. LITIO [Concomitant]
     Active Substance: LITHIUM CARBONATE
     Indication: PSYCHOTIC DISORDER
     Dosage: 400 MG, QD
     Route: 048
     Dates: start: 20171106
  4. PARACETAMOL [Concomitant]
     Active Substance: ACETAMINOPHEN
     Indication: PAIN
  5. PARACETAMOL [Concomitant]
     Active Substance: ACETAMINOPHEN
     Indication: PYREXIA
     Dosage: 1000 MG, Q8H
     Route: 041
     Dates: start: 20171106, end: 20171121
  6. DEXAMETHASONE. [Suspect]
     Active Substance: DEXAMETHASONE
     Indication: PLASMA CELL MYELOMA
     Dosage: 40 MG, QW
     Route: 048
     Dates: start: 20170623
  7. CARBAMAZEPINE. [Concomitant]
     Active Substance: CARBAMAZEPINE
     Indication: DEPRESSION
     Dosage: 200 MG, Q12H
     Route: 048
     Dates: start: 20170927
  8. REVLIMID [Suspect]
     Active Substance: LENALIDOMIDE
     Indication: PLASMA CELL MYELOMA
     Dosage: 25 MG, QD
     Route: 048
     Dates: start: 20170623

REACTIONS (3)
  - Respiratory tract infection [Recovered/Resolved]
  - Rash [Not Recovered/Not Resolved]
  - Respiratory tract infection [Recovered/Resolved]

NARRATIVE: CASE EVENT DATE: 20171011
